FAERS Safety Report 4347866-1 (Version None)
Quarter: 2004Q2

REPORT INFORMATION
  Report Type: 
  Country: None (occurrence: None)
  Receive Date: 20040422
  Receipt Date: 20040405
  Transmission Date: 20050107
  Serious: Yes (Hospitalization, Other)
  Sender: FDA-Public Use
  Company Number: US_991029297

PATIENT
  Age: 83 Year
  Sex: Female

DRUGS (8)
  1. ZYPREXA [Suspect]
     Dosage: 5 MG/1 DAY
  2. BACTRIM [Concomitant]
  3. LITHIUM CARBONATE [Concomitant]
  4. TRAZODONE HCL [Concomitant]
  5. PIROXICAM [Concomitant]
  6. CLONAZEPAM [Concomitant]
  7. LACTULOSE [Concomitant]
  8. TRIMETHOPRIM [Concomitant]

REACTIONS (15)
  - ASPARTATE AMINOTRANSFERASE INCREASED [None]
  - BLOOD PRESSURE DIASTOLIC DECREASED [None]
  - COMA [None]
  - CONSTIPATION [None]
  - DECREASED ACTIVITY [None]
  - DEPRESSED LEVEL OF CONSCIOUSNESS [None]
  - DRUG INTERACTION [None]
  - DRUG LEVEL INCREASED [None]
  - HYPOTHERMIA [None]
  - LETHARGY [None]
  - MARKEDLY REDUCED DIETARY INTAKE [None]
  - MENTAL STATUS CHANGES [None]
  - MUSCLE RIGIDITY [None]
  - PITTING OEDEMA [None]
  - SOCIAL AVOIDANT BEHAVIOUR [None]
